FAERS Safety Report 19979746 (Version 8)
Quarter: 2023Q1

REPORT INFORMATION
  Report Type: Report from Study
  Country: US (occurrence: US)
  Receive Date: 20211021
  Receipt Date: 20230123
  Transmission Date: 20230418
  Serious: Yes (Hospitalization, Other)
  Sender: FDA-Public Use
  Company Number: US-BOEHRINGERINGELHEIM-2021-BI-104053

PATIENT
  Age: 73 Year
  Sex: Female

DRUGS (2)
  1. OFEV [Suspect]
     Active Substance: NINTEDANIB
     Indication: Idiopathic pulmonary fibrosis
     Dosage: LOT: 102164, 102377A,102653, 102655
     Route: 048
     Dates: start: 20200115
  2. METOPROLOL [Concomitant]
     Active Substance: METOPROLOL
     Indication: Product used for unknown indication

REACTIONS (21)
  - Chills [Recovering/Resolving]
  - Feeling cold [Recovering/Resolving]
  - Haematological infection [Recovering/Resolving]
  - Tremor [Recovering/Resolving]
  - Fall [Unknown]
  - Catheterisation cardiac [Unknown]
  - Fluid retention [Unknown]
  - Peripheral swelling [Unknown]
  - Electrolyte imbalance [Unknown]
  - Dizziness [Unknown]
  - Cardiac failure [Unknown]
  - COVID-19 [Recovering/Resolving]
  - Diarrhoea [Unknown]
  - Dehydration [Unknown]
  - Cataract [Unknown]
  - Weight increased [Unknown]
  - Abdominal discomfort [Recovering/Resolving]
  - Vomiting [Recovering/Resolving]
  - Back pain [Recovering/Resolving]
  - Pain [Recovering/Resolving]
  - Weight decreased [Recovering/Resolving]

NARRATIVE: CASE EVENT DATE: 20210101
